FAERS Safety Report 12776893 (Version 3)
Quarter: 2016Q4

REPORT INFORMATION
  Report Type: Spontaneous
  Country: RU (occurrence: RU)
  Receive Date: 20160923
  Receipt Date: 20161020
  Transmission Date: 20170207
  Serious: Yes (Life-Threatening)
  Sender: FDA-Public Use
  Company Number: RU-SA-2016SA174153

PATIENT
  Age: 53 Year
  Sex: Male

DRUGS (7)
  1. CANEPHRON N [Concomitant]
     Route: 065
  2. RIVAROXABAN [Concomitant]
     Active Substance: RIVAROXABAN
     Route: 065
  3. PREDUCTAL [Concomitant]
     Active Substance: TRIMETAZIDINE DIHYDROCHLORIDE
     Route: 065
  4. OMEZ [Concomitant]
     Active Substance: OMEPRAZOLE
     Route: 065
  5. ELOXATIN [Suspect]
     Active Substance: OXALIPLATIN
     Route: 042
     Dates: start: 20160906, end: 20160906
  6. HEPTRAL [Concomitant]
     Active Substance: ADEMETIONINE
     Route: 065
  7. LORISTA [Concomitant]
     Active Substance: LOSARTAN POTASSIUM
     Indication: HYPERTENSION
     Route: 065

REACTIONS (6)
  - Cyanosis [Recovered/Resolved]
  - Dyspnoea [Recovered/Resolved]
  - Delirium [Recovered/Resolved]
  - Blood pressure increased [Recovered/Resolved]
  - Chills [Recovered/Resolved]
  - Tremor [Recovered/Resolved]

NARRATIVE: CASE EVENT DATE: 20160906
